FAERS Safety Report 9302575 (Version 1)
Quarter: 2013Q2

REPORT INFORMATION
  Report Type: Spontaneous
  Country: US (occurrence: None)
  Receive Date: 20130516
  Receipt Date: 20130516
  Transmission Date: 20140414
  Serious: Yes (Other)
  Sender: FDA-Public Use
  Company Number: ADR-2013UNK101

PATIENT
  Age: 280 Day
  Sex: Male
  Weight: 3 kg

DRUGS (4)
  1. LAMIVUDINE [Suspect]
     Indication: ACQUIRED IMMUNODEFICIENCY SYNDROME
     Dosage: 1 COURSE + ORAL
     Route: 048
     Dates: start: 20120312
  2. PREZISTA [Concomitant]
  3. FORTOVASE [Concomitant]
  4. NORVIR [Concomitant]

REACTIONS (5)
  - Congenital anomaly [None]
  - Congenital central nervous system anomaly [None]
  - Colitis ischaemic [None]
  - Jaundice neonatal [None]
  - Maternal drugs affecting foetus [None]
